FAERS Safety Report 7626468-5 (Version None)
Quarter: 2011Q3

REPORT INFORMATION
  Report Type: 
  Country: None (occurrence: None)
  Receive Date: 20110721
  Receipt Date: 20110718
  Transmission Date: 20111222
  Serious: Yes (Hospitalization, Other)
  Sender: FDA-Public Use
  Company Number: FR-PFIZER INC-2011161596

PATIENT
  Age: 79 Year
  Sex: Female

DRUGS (9)
  1. AMLODIPINE BESYLATE [Concomitant]
     Dosage: 5
  2. VALSARTAN [Concomitant]
     Dosage: 80
  3. LESCOL [Concomitant]
     Dosage: 80
  4. NEXIUM [Concomitant]
     Dosage: 40
  5. MEDROL [Suspect]
     Indication: BRAIN OEDEMA
  6. KEPPRA [Concomitant]
     Dosage: 250
  7. IMOVANE [Concomitant]
     Dosage: 7.5
  8. POTASSIUM CHLORIDE [Concomitant]
  9. MEDROL [Suspect]
     Indication: METASTASES TO CENTRAL NERVOUS SYSTEM
     Dosage: 16 MG, 2X/DAY
     Route: 048
     Dates: start: 20110104, end: 20110315

REACTIONS (1)
  - MANIA [None]
